FAERS Safety Report 7814919-2 (Version None)
Quarter: 2011Q4

REPORT INFORMATION
  Report Type: 
  Country: None (occurrence: None)
  Receive Date: 20111014
  Receipt Date: 20111010
  Transmission Date: 20120403
  Serious: Yes (Hospitalization, Other)
  Sender: FDA-Public Use
  Company Number: US-AMGEN-KDC412066

PATIENT
  Age: 40 Year
  Sex: Female
  Weight: 109 kg

DRUGS (15)
  1. FISH OIL [Concomitant]
     Dosage: UNK UNK, QD
     Route: 048
     Dates: start: 20090717, end: 20100404
  2. CHOLINE [Concomitant]
     Dosage: UNK UNK, QD
     Route: 048
     Dates: start: 20091201, end: 20100410
  3. SYNTHROID [Concomitant]
     Indication: HYPOTHYROIDISM
     Dosage: 100 MUG, QD
     Route: 048
     Dates: start: 20090717, end: 20100410
  4. MULTI-VITAMINS [Concomitant]
     Dosage: UNK UNK, QD
     Route: 048
     Dates: start: 20090717, end: 20100410
  5. SELENIUM [Concomitant]
     Dosage: 100 MUG, QD
     Route: 048
     Dates: start: 20090717, end: 20090817
  6. ASPIRIN [Concomitant]
     Dosage: 81 MG, QD
     Route: 048
     Dates: start: 20090803, end: 20090918
  7. INFLUENZA VACCINE [Concomitant]
     Dosage: UNK UNK, QD
     Dates: start: 20091102, end: 20091102
  8. INFLUENSAVACCIN [Concomitant]
     Dosage: UNK UNK, QD
     Dates: start: 20091102, end: 20091102
  9. HYALURONIC ACID [Concomitant]
     Dosage: UNK UNK, UNK
     Route: 048
     Dates: start: 20090717, end: 20091110
  10. VITAMIN K2 [Concomitant]
     Dosage: 100 MUG, QD
     Route: 048
     Dates: start: 20090717, end: 20090817
  11. TYLENOL-500 [Concomitant]
     Indication: ABDOMINAL PAIN
     Dosage: UNK UNK, UNK
     Route: 048
     Dates: start: 20090714, end: 20100110
  12. ETANERCEPT [Suspect]
     Indication: PSORIATIC ARTHROPATHY
     Dosage: 50 MG, QWK
     Dates: start: 20090717, end: 20090817
  13. VITAMIN D [Concomitant]
     Dosage: 5000 IU, UNK
     Route: 048
     Dates: start: 20090717, end: 20100101
  14. PROGESTERONE [Concomitant]
     Dosage: UNK UNK, QD
     Route: 067
     Dates: start: 20090803, end: 20091005
  15. CORTISONE ACETATE [Concomitant]
     Dosage: 5 MG, QD
     Route: 048
     Dates: start: 20091110, end: 20100410

REACTIONS (2)
  - ABORTION SPONTANEOUS [None]
  - UTERINE HAEMORRHAGE [None]
